FAERS Safety Report 25439048 (Version 1)
Quarter: 2025Q2

REPORT INFORMATION
  Report Type: Spontaneous
  Country: US (occurrence: US)
  Receive Date: 20250616
  Receipt Date: 20250616
  Transmission Date: 20250716
  Serious: Yes (Other)
  Sender: EPIC PHARM
  Company Number: US-EPICPHARMA-US-2025EPCLIT00722

PATIENT
  Age: 57 Year
  Sex: Male

DRUGS (22)
  1. CARBOPLATIN [Suspect]
     Active Substance: CARBOPLATIN
     Indication: Acinar cell carcinoma of pancreas
     Route: 065
  2. CARBOPLATIN [Suspect]
     Active Substance: CARBOPLATIN
     Indication: Pancreatic neuroendocrine tumour
  3. OXALIPLATIN [Suspect]
     Active Substance: OXALIPLATIN
     Indication: Acinar cell carcinoma of pancreas
     Route: 065
     Dates: start: 2021
  4. OXALIPLATIN [Suspect]
     Active Substance: OXALIPLATIN
     Indication: Pancreatic neuroendocrine tumour
  5. GEMCITABINE [Suspect]
     Active Substance: GEMCITABINE
     Indication: Acinar cell carcinoma of pancreas
     Route: 065
     Dates: start: 2021
  6. GEMCITABINE [Suspect]
     Active Substance: GEMCITABINE
     Indication: Pancreatic neuroendocrine tumour
  7. FLUOROURACIL [Suspect]
     Active Substance: FLUOROURACIL
     Indication: Acinar cell carcinoma of pancreas
     Route: 065
     Dates: start: 2021
  8. FLUOROURACIL [Suspect]
     Active Substance: FLUOROURACIL
     Indication: Pancreatic neuroendocrine tumour
  9. LEUCOVORIN [Suspect]
     Active Substance: LEUCOVORIN\LEUCOVORIN CALCIUM
     Indication: Acinar cell carcinoma of pancreas
     Route: 065
  10. LEUCOVORIN [Suspect]
     Active Substance: LEUCOVORIN\LEUCOVORIN CALCIUM
     Indication: Pancreatic neuroendocrine tumour
  11. ETOPOSIDE [Suspect]
     Active Substance: ETOPOSIDE
     Indication: Acinar cell carcinoma of pancreas
     Route: 065
  12. ETOPOSIDE [Suspect]
     Active Substance: ETOPOSIDE
     Indication: Pancreatic neuroendocrine tumour
  13. IPILIMUMAB [Suspect]
     Active Substance: IPILIMUMAB
     Indication: Acinar cell carcinoma of pancreas
     Route: 065
     Dates: start: 2022
  14. IPILIMUMAB [Suspect]
     Active Substance: IPILIMUMAB
     Indication: Pancreatic neuroendocrine tumour
  15. NIVOLUMAB [Suspect]
     Active Substance: NIVOLUMAB
     Indication: Acinar cell carcinoma of pancreas
     Route: 065
     Dates: start: 2022
  16. NIVOLUMAB [Suspect]
     Active Substance: NIVOLUMAB
     Indication: Pancreatic neuroendocrine tumour
  17. CAPECITABINE [Concomitant]
     Active Substance: CAPECITABINE
     Route: 065
  18. TEMOZOLOMIDE [Concomitant]
     Active Substance: TEMOZOLOMIDE
     Route: 065
  19. LAROTRECTINIB [Concomitant]
     Active Substance: LAROTRECTINIB
     Route: 065
  20. SELITRECTINIB [Concomitant]
     Active Substance: SELITRECTINIB
     Route: 065
  21. REPOTRECTINIB [Concomitant]
     Active Substance: REPOTRECTINIB
     Route: 065
  22. REPOTRECTINIB [Concomitant]
     Active Substance: REPOTRECTINIB
     Route: 065

REACTIONS (6)
  - Pulmonary embolism [Unknown]
  - Neuropathy peripheral [Unknown]
  - Fatigue [Unknown]
  - Rash [Unknown]
  - Nausea [Unknown]
  - Product use in unapproved indication [Unknown]
